FAERS Safety Report 7882322 (Version 2)
Quarter: 2012Q4

REPORT INFORMATION
  Report Type: 
  Country: US (occurrence: US)
  Receive Date: 20110401
  Receipt Date: 20121130
  Transmission Date: 20130627
  Serious: Yes (Other)
  Sender: FDA-Public Use
  Company Number: PHHY2011US15686

PATIENT
  Age: 48 Year
  Sex: Female
  Weight: 85.26 kg

DRUGS (18)
  1. GILENYA [Suspect]
     Indication: MULTIPLE SCLEROSIS
     Dosage: 0.5 mg, QD
     Route: 048
     Dates: start: 20110127
  2. ASPIRIN ^BAYER^ [Concomitant]
     Dosage: 81 mg, QD
  3. BIOTIN [Concomitant]
     Dosage: 2 DF, QD
  4. CEPHADIN [Concomitant]
     Dosage: UNK
  5. VITAMIN C [Concomitant]
     Dosage: UNK
  6. VITAMIN B6 [Concomitant]
     Dosage: 2 DF, QD
  7. CYANOCOBALAMIN [Concomitant]
     Dosage: UNK UKN, UNK
  8. EVENING PRIMROSE OIL [Concomitant]
     Dosage: UNK
  9. FLEXERIL [Concomitant]
     Dosage: 10 mg, UNK
  10. LIDODERM [Concomitant]
     Dosage: UNK
  11. LORAZEPAM [Concomitant]
     Dosage: UNK UKN, UNK
  12. SYNTHROID [Concomitant]
     Dosage: 75 ug, UNK
  13. SYNTHROID [Concomitant]
     Dosage: 100 ug, UNK
  14. ZANAFLEX [Concomitant]
     Dosage: 25 mg, UNK
  15. MULTIVITAMIN ^LAPPE^ [Concomitant]
     Dosage: UNK UKN, UNK
  16. VITAMIN B12 [Concomitant]
     Dosage: UNK UKN, UNK
  17. VITAMIN D3 [Concomitant]
     Dosage: 1200 mg, QD
     Route: 048
  18. COREG [Concomitant]
     Dosage: 3.125 mg, UNK

REACTIONS (7)
  - Weight increased [Not Recovered/Not Resolved]
  - Hallucination [Unknown]
  - Abnormal dreams [Not Recovered/Not Resolved]
  - Sleep disorder [Not Recovered/Not Resolved]
  - Oedema peripheral [Unknown]
  - Dyspnoea [Not Recovered/Not Resolved]
  - Alopecia [Unknown]
